FAERS Safety Report 19824203 (Version 2)
Quarter: 2021Q3

REPORT INFORMATION
  Report Type: Spontaneous
  Country: MX (occurrence: MX)
  Receive Date: 20210913
  Receipt Date: 20210929
  Transmission Date: 20211014
  Serious: Yes (Hospitalization)
  Sender: FDA-Public Use
  Company Number: MX-DSJP-DSU-2021-129756

PATIENT
  Age: 76 Year
  Sex: Female

DRUGS (1)
  1. DUOALMETEC [Suspect]
     Active Substance: AMLODIPINE BESYLATE\OLMESARTAN MEDOXOMIL
     Indication: PRODUCT USED FOR UNKNOWN INDICATION
     Dosage: UNK, BID
     Route: 048

REACTIONS (5)
  - Product availability issue [Not Recovered/Not Resolved]
  - Product dose omission issue [Unknown]
  - Blood pressure inadequately controlled [Unknown]
  - Anxiety [Unknown]
  - Blood sodium decreased [Unknown]

NARRATIVE: CASE EVENT DATE: 2021
